FAERS Safety Report 7605353-9 (Version None)
Quarter: 2011Q3

REPORT INFORMATION
  Report Type: 
  Country: None (occurrence: None)
  Receive Date: 20110712
  Receipt Date: 20110712
  Transmission Date: 20111222
  Serious: Yes (Hospitalization)
  Sender: FDA-Public Use
  Company Number: None

PATIENT
  Age: 83 Year
  Sex: Male
  Weight: 130 kg

DRUGS (2)
  1. OXYCODONE HCL [Suspect]
     Indication: PAIN
     Dosage: 5 MG OTHER PO
     Route: 048
     Dates: start: 20110531, end: 20110620
  2. OXAZEPAM [Suspect]
     Indication: ANXIETY
     Dosage: 20 MG HS PO
     Route: 048
     Dates: start: 20110617, end: 20110620

REACTIONS (6)
  - SEDATION [None]
  - DECREASED ACTIVITY [None]
  - HYPOGLYCAEMIA [None]
  - ABASIA [None]
  - ASTHENIA [None]
  - FALL [None]
